FAERS Safety Report 16926542 (Version 1)
Quarter: 2019Q4

REPORT INFORMATION
  Report Type: Spontaneous
  Country: GB (occurrence: GB)
  Receive Date: 20191016
  Receipt Date: 20191016
  Transmission Date: 20200122
  Serious: Yes (Death, Hospitalization)
  Sender: FDA-Public Use
  Company Number: GB-MYLANLABS-2019M1097315

PATIENT
  Age: 50 Year
  Sex: Female

DRUGS (6)
  1. DEXAMETHASONE. [Concomitant]
     Active Substance: DEXAMETHASONE
     Dosage: UNK
  2. TINZAPARIN [Concomitant]
     Active Substance: TINZAPARIN
     Dosage: UNK
  3. DICLOFENAC [Concomitant]
     Active Substance: DICLOFENAC
     Dosage: FOR SEVERAL WEEKS
  4. METHADONE [Concomitant]
     Active Substance: METHADONE HYDROCHLORIDE
     Dosage: UNK
  5. GABAPENTIN. [Suspect]
     Active Substance: GABAPENTIN
     Indication: NEURALGIA
     Dosage: 2400 MILLIGRAM, QD
     Route: 048
     Dates: start: 20190220, end: 20190305
  6. CYCLIZINE [Concomitant]
     Active Substance: CYCLIZINE
     Dosage: UNK

REACTIONS (10)
  - Vomiting [Unknown]
  - Oxygen saturation decreased [Unknown]
  - Coordination abnormal [Unknown]
  - Toxicity to various agents [Not Recovered/Not Resolved]
  - Speech disorder [Unknown]
  - Dyskinesia [Unknown]
  - Pyrexia [Unknown]
  - Acute respiratory failure [Fatal]
  - Somnolence [Unknown]
  - Blood pressure decreased [Unknown]

NARRATIVE: CASE EVENT DATE: 20190305
